FAERS Safety Report 19100208 (Version 1)
Quarter: 2021Q2

REPORT INFORMATION
  Report Type: Spontaneous
  Country: BE (occurrence: BE)
  Receive Date: 20210407
  Receipt Date: 20210407
  Transmission Date: 20210717
  Serious: Yes (Other)
  Sender: FDA-Public Use
  Company Number: BE-SUN PHARMACEUTICAL INDUSTRIES LTD-2021R1-289586

PATIENT
  Age: 60 Year
  Sex: Male

DRUGS (4)
  1. CISPLATIN. [Suspect]
     Active Substance: CISPLATIN
     Indication: MESOTHELIOMA
     Dosage: UNK (100 MG; 50 MG/M2)
     Route: 033
  2. 2?MERCAPTOETHANESULFONATE SODIUM [Suspect]
     Active Substance: MESNA
     Indication: MESOTHELIOMA
     Dosage: UNK (520 MG; 260 MG/M2)
  3. DOXORUBICIN [Suspect]
     Active Substance: DOXORUBICIN
     Indication: MESOTHELIOMA
     Dosage: UNK (30 MG; 15 MG/M2)
     Route: 033
  4. IFOSFAMIDE. [Suspect]
     Active Substance: IFOSFAMIDE
     Indication: MESOTHELIOMA
     Dosage: UNK (2600 MG; 1300 MG/M2)

REACTIONS (1)
  - Encapsulating peritoneal sclerosis [Recovered/Resolved]
